FAERS Safety Report 9804607 (Version 1)
Quarter: 2014Q1

REPORT INFORMATION
  Report Type: Spontaneous
  Country: US (occurrence: US)
  Receive Date: 20140108
  Receipt Date: 20140108
  Transmission Date: 20141002
  Serious: Yes (Other)
  Sender: FDA-Public Use
  Company Number: US-ENDO PHARMACEUTICALS INC.-OPCR20140005

PATIENT
  Age: 53 Year
  Sex: Female

DRUGS (3)
  1. OPANA ER 20MG [Suspect]
     Indication: FIBROMYALGIA
     Route: 048
  2. OPANA ER 20MG [Suspect]
     Indication: ARTHRALGIA
  3. OPANA ER 20MG [Suspect]
     Indication: ROTATOR CUFF SYNDROME

REACTIONS (1)
  - Fall [Unknown]
